FAERS Safety Report 4762522-3 (Version None)
Quarter: 2005Q3

REPORT INFORMATION
  Report Type: 
  Country: None (occurrence: None)
  Receive Date: 20050902
  Receipt Date: 20050303
  Transmission Date: 20060218
  Serious: Yes (Other)
  Sender: FDA-Public Use
  Company Number: 2005S1001018

PATIENT
  Age: 56 Year
  Sex: Male

DRUGS (7)
  1. FENTANYL [Suspect]
     Indication: PAIN
     Dosage: 50 MCG/HR; Q3D; TDER
     Route: 062
     Dates: start: 20050218
  2. INSULIN GLARGINE [Concomitant]
  3. IRBESARTAN [Concomitant]
  4. PANCREATIN [Concomitant]
  5. PARACETAMOL/OXYCODONE HYDROCHLORIDE [Concomitant]
  6. PROMETHAZINE [Concomitant]
  7. PARACETAMOL/OXYCODONE HYDROCHLORIDE [Concomitant]

REACTIONS (1)
  - APPLICATION SITE IRRITATION [None]
